FAERS Safety Report 5131629-3 (Version None)
Quarter: 2006Q4

REPORT INFORMATION
  Report Type: 
  Country: None (occurrence: None)
  Receive Date: 20061020
  Receipt Date: 20061017
  Transmission Date: 20070319
  Serious: Yes (Death, Hospitalization)
  Sender: FDA-Public Use
  Company Number: 2006PK02081

PATIENT
  Age: 262 Month
  Sex: Female

DRUGS (1)
  1. SEROQUEL [Suspect]
     Indication: PSYCHOTIC DISORDER
     Route: 048
     Dates: start: 20020101

REACTIONS (5)
  - DEATH [None]
  - METABOLIC DISORDER [None]
  - OPTIC NEURITIS [None]
  - VISUAL DISTURBANCE [None]
  - VISUAL FIELD DEFECT [None]
